FAERS Safety Report 10716819 (Version 1)
Quarter: 2015Q1

REPORT INFORMATION
  Report Type: Spontaneous
  Country: US (occurrence: None)
  Receive Date: 20150115
  Receipt Date: 20150115
  Transmission Date: 20150721
  Serious: Yes (Life-Threatening, Hospitalization, Disabling, Other)
  Sender: FDA-Public Use
  Company Number: None

PATIENT
  Age: 60 Year
  Sex: Male
  Weight: 117.94 kg

DRUGS (4)
  1. ANDROGEL [Suspect]
     Active Substance: TESTOSTERONE
     Indication: FATIGUE
     Dosage: 2 PUMPS, APPLIED TO A SURFACE, USUALLY THE SKIN
  2. ANDROGEL [Suspect]
     Active Substance: TESTOSTERONE
     Indication: DEPRESSION
     Dosage: 2 PUMPS, APPLIED TO A SURFACE, USUALLY THE SKIN
  3. ANDROGEL [Suspect]
     Active Substance: TESTOSTERONE
     Indication: OBESITY
     Dosage: 2 PUMPS, APPLIED TO A SURFACE, USUALLY THE SKIN
  4. ANDROGEL [Suspect]
     Active Substance: TESTOSTERONE
     Indication: BLOOD TESTOSTERONE DECREASED
     Dosage: 2 PUMPS, APPLIED TO A SURFACE, USUALLY THE SKIN

REACTIONS (8)
  - Myocardial infarction [None]
  - Glucose tolerance impaired [None]
  - Flushing [None]
  - Pulmonary embolism [None]
  - Anxiety [None]
  - Thrombosis [None]
  - Muscular weakness [None]
  - Palpitations [None]

NARRATIVE: CASE EVENT DATE: 20111229
